FAERS Safety Report 9377441 (Version 1)
Quarter: 2013Q3

REPORT INFORMATION
  Report Type: Spontaneous
  Country: US (occurrence: US)
  Receive Date: 20130701
  Receipt Date: 20130701
  Transmission Date: 20140515
  Serious: No
  Sender: FDA-Public Use
  Company Number: US-ABBOTT-12P-163-0952646-00

PATIENT
  Age: 26 Year
  Sex: Male
  Weight: 68.1 kg

DRUGS (7)
  1. NORVIR SOFT GELATIN CAPSULES [Suspect]
     Indication: HIV INFECTION
     Dates: start: 20120622
  2. REYATAZ [Concomitant]
     Indication: HIV INFECTION
  3. TRUVADA [Concomitant]
     Indication: HIV INFECTION
  4. DEPAKOTE [Concomitant]
     Indication: PRODUCT USED FOR UNKNOWN INDICATION
  5. ADDERALL [Concomitant]
     Indication: PRODUCT USED FOR UNKNOWN INDICATION
  6. CALCIUM [Concomitant]
     Indication: MINERAL SUPPLEMENTATION
  7. MULTIVITAMIN [Concomitant]
     Indication: VITAMIN SUPPLEMENTATION

REACTIONS (1)
  - Incorrect product storage [Not Recovered/Not Resolved]
